FAERS Safety Report 7030470-4 (Version None)
Quarter: 2010Q4

REPORT INFORMATION
  Report Type: 
  Country: None (occurrence: None)
  Receive Date: 20101006
  Receipt Date: 20100928
  Transmission Date: 20110411
  Serious: Yes (Hospitalization)
  Sender: FDA-Public Use
  Company Number: GB-JNJFOC-20100908985

PATIENT
  Age: 72 Year
  Sex: Male
  Weight: 96 kg

DRUGS (7)
  1. ACETAMINOPHEN AND CODEINE PHOSPHATE [Suspect]
     Indication: OSTEOARTHRITIS
     Route: 048
  2. BISOPROLOL [Suspect]
     Indication: MYOCARDIAL ISCHAEMIA
     Route: 048
  3. BISOPROLOL [Suspect]
     Route: 048
  4. ASPIRIN [Concomitant]
     Route: 065
  5. CANDESARTAN CILEXETIL [Concomitant]
     Route: 065
  6. NITROGLYCERIN [Concomitant]
     Route: 065
  7. SIMVASTATIN [Concomitant]
     Route: 065

REACTIONS (2)
  - BRADYCARDIA [None]
  - VENTRICULAR EXTRASYSTOLES [None]
